FAERS Safety Report 5272541-9 (Version None)
Quarter: 2007Q1

REPORT INFORMATION
  Report Type: 
  Country: None (occurrence: None)
  Receive Date: 20070322
  Receipt Date: 20061227
  Transmission Date: 20070707
  Serious: Yes (Other)
  Sender: FDA-Public Use
  Company Number: US-BRISTOL-MYERS SQUIBB COMPANY-13571450

PATIENT
  Age: 43 Year
  Sex: Female
  Weight: 55 kg

DRUGS (1)
  1. KENALOG [Suspect]
     Indication: SINUSITIS
     Route: 030
     Dates: start: 20050701

REACTIONS (1)
  - MUSCLE ATROPHY [None]
